FAERS Safety Report 5012696-4 (Version None)
Quarter: 2006Q2

REPORT INFORMATION
  Report Type: 
  Country: None (occurrence: None)
  Receive Date: 20060524
  Receipt Date: 20060516
  Transmission Date: 20061013
  Serious: Yes (Death)
  Sender: FDA-Public Use
  Company Number: 2006064048

PATIENT
  Age: 66 Year
  Sex: Male
  Weight: 61 kg

DRUGS (12)
  1. INSPRA [Suspect]
     Indication: ILL-DEFINED DISORDER
     Dosage: 12.5 MG (12. 5 MG, DAILY: EVERY DAY), ORAL
     Route: 048
  2. BUMETANIDE [Concomitant]
  3. BENDROFLUMETHIAZIDE [Concomitant]
  4. ENALAPRIL [Concomitant]
  5. NICORANDIL [Concomitant]
  6. CLOPIDOGREL [Concomitant]
  7. CARVEDILOL [Concomitant]
  8. SERETIDE (FLUTICASONE PROPIONATE, SALMETEROL XINAFOATE) [Concomitant]
  9. SALBUTAMOL [Concomitant]
  10. INSULIN [Concomitant]
  11. DOMPERIDONE [Concomitant]
  12. CHLORPHENAMINE [Concomitant]

REACTIONS (4)
  - CARDIAC DISORDER [None]
  - HYPOAESTHESIA [None]
  - PARAESTHESIA [None]
  - UNEVALUABLE EVENT [None]
